FAERS Safety Report 5229214-8 (Version None)
Quarter: 2007Q1

REPORT INFORMATION
  Report Type: 
  Country: None (occurrence: None)
  Receive Date: 20070131
  Receipt Date: 20070124
  Transmission Date: 20070707
  Serious: Yes (Death, Hospitalization, Other)
  Sender: FDA-Public Use
  Company Number: 163-21880-06120861

PATIENT
  Age: 69 Year
  Sex: Male

DRUGS (7)
  1. REVLIMID [Suspect]
     Indication: MULTIPLE MYELOMA
     Dosage: 25 MG, 3 WEEKS ON, 1 WEEK OFF, ORAL
     Route: 048
     Dates: start: 20060710, end: 20061208
  2. REVLIMID [Suspect]
  3. LISINOPRIL [Suspect]
     Indication: DRUG USE FOR UNKNOWN INDICATION
  4. ACTOS [Suspect]
     Indication: DRUG USE FOR UNKNOWN INDICATION
  5. PROTONIX [Suspect]
     Indication: DRUG USE FOR UNKNOWN INDICATION
  6. COUMADIN [Suspect]
     Indication: DRUG USE FOR UNKNOWN INDICATION
  7. INSULIN (INSULIN) [Suspect]
     Indication: DRUG USE FOR UNKNOWN INDICATION

REACTIONS (5)
  - BLOOD COUNT ABNORMAL [None]
  - CARDIAC DISORDER [None]
  - MALIGNANT NEOPLASM PROGRESSION [None]
  - MULTIPLE MYELOMA [None]
  - PLATELET COUNT DECREASED [None]
